FAERS Safety Report 13690677 (Version 2)
Quarter: 2017Q3

REPORT INFORMATION
  Report Type: Spontaneous
  Country: JP (occurrence: JP)
  Receive Date: 20170626
  Receipt Date: 20170719
  Transmission Date: 20171127
  Serious: Yes (Other)
  Sender: FDA-Public Use
  Company Number: JP-GLAXOSMITHKLINE-JP2017JPN094810

PATIENT
  Age: 45 Year
  Sex: Female

DRUGS (19)
  1. LAMICTAL [Suspect]
     Active Substance: LAMOTRIGINE
     Dosage: 50 MG, 1D
     Route: 048
     Dates: start: 20170202, end: 20170215
  2. MAGMITT [Concomitant]
     Active Substance: MAGNESIUM OXIDE
     Dosage: UNK
  3. LAMICTAL [Suspect]
     Active Substance: LAMOTRIGINE
     Dosage: 25 MG, 1D
     Route: 048
     Dates: start: 20170120
  4. SILECE [Concomitant]
     Active Substance: FLUNITRAZEPAM
     Dosage: UNK
  5. LIMAS [Concomitant]
     Active Substance: LITHIUM CARBONATE
     Dosage: UNK
  6. RISPERIDONE. [Concomitant]
     Active Substance: RISPERIDONE
     Dosage: UNK
  7. PROTECADIN [Concomitant]
     Active Substance: LAFUTIDINE
     Dosage: UNK
  8. ANTEBATE [Concomitant]
     Active Substance: BETAMETHASONE DIPROPIONATE
     Dosage: UNK
  9. MEDROL [Concomitant]
     Active Substance: METHYLPREDNISOLONE
     Dosage: UNK
  10. LAMICTAL [Suspect]
     Active Substance: LAMOTRIGINE
     Indication: BIPOLAR II DISORDER
     Dosage: 12.5 MG, 1D
     Route: 048
     Dates: start: 20170105
  11. LOXONIN [Concomitant]
     Active Substance: LOXOPROFEN SODIUM
     Dosage: UNK
  12. DEPAKENE [Concomitant]
     Active Substance: VALPROIC ACID
     Dosage: UNK
  13. ALLELOCK [Concomitant]
     Active Substance: OLOPATADINE HYDROCHLORIDE
     Dosage: UNK
  14. ABILIFY [Concomitant]
     Active Substance: ARIPIPRAZOLE
     Dosage: UNK
  15. RIVOTRIL [Concomitant]
     Active Substance: CLONAZEPAM
     Dosage: UNK
  16. MEILAX [Concomitant]
     Active Substance: ETHYL LOFLAZEPATE
     Dosage: UNK
  17. GASTER [Concomitant]
     Active Substance: FAMOTIDINE
     Dosage: UNK
  18. BUP-4 [Concomitant]
     Active Substance: PROPIVERINE
     Dosage: UNK
  19. LOCOID CREAM [Concomitant]
     Dosage: UNK

REACTIONS (2)
  - Rash [Recovered/Resolved]
  - Pyrexia [Recovered/Resolved]

NARRATIVE: CASE EVENT DATE: 20170213
